FAERS Safety Report 25104193 (Version 1)
Quarter: 2025Q1

REPORT INFORMATION
  Report Type: Spontaneous
  Country: CA (occurrence: CA)
  Receive Date: 20250321
  Receipt Date: 20250321
  Transmission Date: 20250408
  Serious: Yes (Congenital Anomaly, Other)
  Sender: ACCORD
  Company Number: None

PATIENT

DRUGS (3)
  1. TACROLIMUS [Suspect]
     Active Substance: TACROLIMUS
     Route: 064
  2. AZATHIOPRINE [Suspect]
     Active Substance: AZATHIOPRINE
     Route: 064
  3. SIROLIMUS [Suspect]
     Active Substance: SIROLIMUS
     Route: 064

REACTIONS (3)
  - Adactyly [Unknown]
  - Congenital musculoskeletal disorder of limbs [Unknown]
  - Foetal exposure during pregnancy [Unknown]
